FAERS Safety Report 8850081 (Version 5)
Quarter: 2013Q2

REPORT INFORMATION
  Report Type: Spontaneous
  Country: CA (occurrence: CA)
  Receive Date: 20121019
  Receipt Date: 20130510
  Transmission Date: 20140414
  Serious: Yes (Hospitalization)
  Sender: FDA-Public Use
  Company Number: CA-GLAXOSMITHKLINE-A0996907A

PATIENT
  Age: 76 Year
  Sex: Female
  Weight: 45 kg

DRUGS (3)
  1. BENLYSTA [Suspect]
     Indication: SYSTEMIC LUPUS ERYTHEMATOSUS
     Dosage: 500MG EVERY 28 DAYS
     Route: 042
     Dates: start: 20120503
  2. PREDNISONE [Concomitant]
  3. AZATHIOPRINE [Concomitant]

REACTIONS (7)
  - Basal cell carcinoma [Unknown]
  - Hip arthroplasty [Recovered/Resolved]
  - Neuralgia [Unknown]
  - Cataract operation [Unknown]
  - Balance disorder [Unknown]
  - Contusion [Unknown]
  - Skin cancer [Unknown]
